FAERS Safety Report 7967684-2 (Version None)
Quarter: 2011Q4

REPORT INFORMATION
  Report Type: 
  Country: None (occurrence: None)
  Receive Date: 20111207
  Receipt Date: 20111125
  Transmission Date: 20120403
  Serious: Yes (Other)
  Sender: FDA-Public Use
  Company Number: 1000025959

PATIENT
  Age: 33 Year
  Sex: Female

DRUGS (3)
  1. PHENERGEN (PROMETHAZINE) [Concomitant]
  2. LEXAPRO [Suspect]
     Indication: MAJOR DEPRESSION
     Dosage: 30 MG (30 MG, 1 IN 1 D), ORAL
     Route: 048
  3. ONDANSETRON [Concomitant]

REACTIONS (4)
  - PREGNANCY [None]
  - OVERDOSE [None]
  - PREMATURE DELIVERY [None]
  - MATERNAL EXPOSURE DURING PREGNANCY [None]
